FAERS Safety Report 17812029 (Version 1)
Quarter: 2020Q2

REPORT INFORMATION
  Report Type: Spontaneous
  Country: US (occurrence: US)
  Receive Date: 20200520
  Receipt Date: 20200520
  Transmission Date: 20200714
  Serious: No
  Sender: FDA-Public Use
  Company Number: None

PATIENT
  Age: 37 Year
  Sex: Female

DRUGS (1)
  1. HUMIRA [Suspect]
     Active Substance: ADALIMUMAB
     Indication: COLITIS ULCERATIVE
     Route: 058
     Dates: start: 201912

REACTIONS (7)
  - Vertigo [None]
  - Balance disorder [None]
  - Tinnitus [None]
  - Headache [None]
  - Migraine [None]
  - Hangover [None]
  - Rash [None]

NARRATIVE: CASE EVENT DATE: 201912
